FAERS Safety Report 6191268-2 (Version None)
Quarter: 2009Q2

REPORT INFORMATION
  Report Type: 
  Country: None (occurrence: None)
  Receive Date: 20090513
  Receipt Date: 20090513
  Transmission Date: 20091009
  Serious: Yes (Other)
  Sender: FDA-Public Use
  Company Number: None

PATIENT
  Age: 75 Year
  Sex: Female
  Weight: 57.6068 kg

DRUGS (1)
  1. NITROFURANTOIN [Suspect]
     Indication: WHITE BLOOD CELLS URINE POSITIVE
     Dosage: 100MG 1 CAPSULE 2X A DAY
     Dates: start: 20090225

REACTIONS (5)
  - ERYTHEMA [None]
  - OEDEMA PERIPHERAL [None]
  - PRURITUS [None]
  - RASH GENERALISED [None]
  - URTICARIA [None]
